FAERS Safety Report 8372520-9 (Version None)
Quarter: 2012Q2

REPORT INFORMATION
  Report Type: 
  Country: None (occurrence: None)
  Receive Date: 20120521
  Receipt Date: 20120514
  Transmission Date: 20120825
  Serious: Yes (Other)
  Sender: FDA-Public Use
  Company Number: PHHY2012JP035459

PATIENT
  Age: 58 Year
  Sex: Male

DRUGS (5)
  1. BISOPROLOL FUMARATE [Concomitant]
     Dosage: 5 MG, UNK
     Route: 048
  2. NORVASC [Concomitant]
     Dosage: 5 MG, UNK
     Route: 048
  3. DIOVAN [Suspect]
     Indication: HYPERTENSION
     Dosage: 160 MG, ONCE DAILY
     Route: 048
  4. ALLOPURINOL [Concomitant]
     Dosage: 100 MG, UNK
     Route: 048
  5. ALLOPURINOL [Suspect]
     Route: 048

REACTIONS (1)
  - BLOOD CREATINE PHOSPHOKINASE INCREASED [None]
